FAERS Safety Report 23071639 (Version 1)
Quarter: 2023Q4

REPORT INFORMATION
  Report Type: Spontaneous
  Country: US (occurrence: US)
  Receive Date: 20231017
  Receipt Date: 20231017
  Transmission Date: 20240109
  Serious: Yes (Hospitalization, Other)
  Sender: FDA-Public Use
  Company Number: US-JNJFOC-20231017383

PATIENT
  Age: 8 Year
  Sex: Male

DRUGS (6)
  1. RISPERDAL [Suspect]
     Active Substance: RISPERIDONE
     Indication: Depression
     Route: 048
  2. RISPERDAL [Suspect]
     Active Substance: RISPERIDONE
     Indication: Aggression
  3. RISPERDAL [Suspect]
     Active Substance: RISPERIDONE
     Indication: Autism spectrum disorder
  4. RISPERDAL [Suspect]
     Active Substance: RISPERIDONE
     Indication: Attention deficit hyperactivity disorder
  5. RISPERDAL [Suspect]
     Active Substance: RISPERIDONE
     Indication: Anger
  6. RISPERDAL [Suspect]
     Active Substance: RISPERIDONE
     Indication: Seizure

REACTIONS (7)
  - Suicide attempt [Unknown]
  - Extrapyramidal disorder [Unknown]
  - Withdrawal syndrome [Unknown]
  - Obesity [Unknown]
  - Glucose tolerance impaired [Unknown]
  - Hypertension [Unknown]
  - Off label use [Unknown]

NARRATIVE: CASE EVENT DATE: 20130501
